FAERS Safety Report 25121662 (Version 1)
Quarter: 2025Q1

REPORT INFORMATION
  Report Type: Spontaneous
  Country: MY (occurrence: MY)
  Receive Date: 20250326
  Receipt Date: 20250326
  Transmission Date: 20250408
  Serious: Yes (Other)
  Sender: ALKEM
  Company Number: MY-ALKEM LABORATORIES LIMITED-MY-ALKEM-2024-03551

PATIENT
  Age: 18 Year
  Sex: Male

DRUGS (2)
  1. COLCHICINE [Suspect]
     Active Substance: COLCHICINE
     Indication: Myopericarditis
     Route: 065
  2. COLCHICINE [Suspect]
     Active Substance: COLCHICINE
     Route: 065

REACTIONS (2)
  - Myopericarditis [Recovering/Resolving]
  - Condition aggravated [Recovering/Resolving]
